FAERS Safety Report 18055895 (Version 1)
Quarter: 2020Q3

REPORT INFORMATION
  Report Type: Spontaneous
  Country: DE (occurrence: DE)
  Receive Date: 20200722
  Receipt Date: 20200722
  Transmission Date: 20201103
  Serious: Yes (Other)
  Sender: FDA-Public Use
  Company Number: DE-ACTELION-A-US2020-204752

PATIENT
  Age: 81 Year
  Sex: Female

DRUGS (14)
  1. ILOPROST. [Suspect]
     Active Substance: ILOPROST
     Indication: PULMONARY HYPERTENSION
     Dosage: UNK
     Route: 055
  2. AMLODIPIN 1 A PHARMA [Concomitant]
     Active Substance: AMLODIPINE BESYLATE
  3. ELIQUIS [Concomitant]
     Active Substance: APIXABAN
  4. APIDRA [Concomitant]
     Active Substance: INSULIN GLULISINE
  5. METHYLPREDNISOLON ACIS [Concomitant]
  6. TORASEMID?1A PHARMA [Concomitant]
     Active Substance: TORSEMIDE
  7. LUVOS [Concomitant]
     Active Substance: ALUMINUM OXIDE\IRON SUCROSE\LIME (CALCIUM OXIDE)\POTASSIUM\SILICON DIOXIDE
  8. PANTOPRAZOLE SODIUM. [Concomitant]
     Active Substance: PANTOPRAZOLE SODIUM
  9. KREON [Concomitant]
     Active Substance: PANCRELIPASE
  10. BELOC ZOK [Concomitant]
     Active Substance: METOPROLOL SUCCINATE
  11. ADCIRCA [Concomitant]
     Active Substance: TADALAFIL
     Indication: PULMONARY HYPERTENSION
  12. OMNIFLORA N [BIFIDOBACTERIUM BIFIDUM;LACTOBACILLUS GASSERI] [Concomitant]
  13. SALBUTAMOL [Concomitant]
     Active Substance: ALBUTEROL
  14. LANTUS [Concomitant]
     Active Substance: INSULIN GLARGINE

REACTIONS (3)
  - Cardiac disorder [Not Recovered/Not Resolved]
  - Dyspnoea [Not Recovered/Not Resolved]
  - Illness [Unknown]
